FAERS Safety Report 21156485 (Version 1)
Quarter: 2022Q3

REPORT INFORMATION
  Report Type: Spontaneous
  Country: US (occurrence: US)
  Receive Date: 20220801
  Receipt Date: 20220801
  Transmission Date: 20221026
  Serious: No
  Sender: FDA-Public Use
  Company Number: US-PADAGIS-2022PAD00218

PATIENT

DRUGS (2)
  1. BACITRACIN [Suspect]
     Active Substance: BACITRACIN
     Indication: Eye infection
     Dosage: UNK
     Route: 065
     Dates: start: 202109
  2. BACITRACIN [Suspect]
     Active Substance: BACITRACIN
     Indication: Endocrine ophthalmopathy

REACTIONS (3)
  - Drug ineffective [Unknown]
  - Product dose omission issue [Unknown]
  - Expired product administered [Unknown]
